FAERS Safety Report 18311066 (Version 1)
Quarter: 2020Q3

REPORT INFORMATION
  Report Type: Other
  Country: US (occurrence: US)
  Receive Date: 20200924
  Receipt Date: 20200924
  Transmission Date: 20201103
  Serious: Yes (Death, Other)
  Sender: FDA-Public Use
  Company Number: US-ROCHE-2679506

PATIENT
  Age: 51 Year
  Sex: Male

DRUGS (7)
  1. DESMOPRESSIN [Concomitant]
     Active Substance: DESMOPRESSIN
  2. AZITHROMYCIN ANHYDROUS. [Concomitant]
     Active Substance: AZITHROMYCIN ANHYDROUS
  3. LEVOTHYROXINE. [Concomitant]
     Active Substance: LEVOTHYROXINE
  4. TESTOSTERONE. [Concomitant]
     Active Substance: TESTOSTERONE
  5. HEPARIN [Concomitant]
     Active Substance: HEPARIN SODIUM
     Route: 042
  6. ALTEPLASE. [Suspect]
     Active Substance: ALTEPLASE
     Indication: PULMONARY EMBOLISM
     Route: 042
  7. CLADRIBINE. [Concomitant]
     Active Substance: CLADRIBINE

REACTIONS (4)
  - Hypotension [Unknown]
  - Haematoma [Unknown]
  - Haemorrhage [Unknown]
  - Distributive shock [Fatal]
